FAERS Safety Report 18967238 (Version 1)
Quarter: 2021Q1

REPORT INFORMATION
  Report Type: Spontaneous
  Country: DE (occurrence: DE)
  Receive Date: 20210304
  Receipt Date: 20210304
  Transmission Date: 20210420
  Serious: Yes (Hospitalization)
  Sender: FDA-Public Use
  Company Number: DE-ORGANON-O2102DEU007804

PATIENT
  Age: 77 Year
  Sex: Male
  Weight: 90 kg

DRUGS (4)
  1. PROSCAR [Suspect]
     Active Substance: FINASTERIDE
     Dosage: UNK
     Route: 048
  2. ATOSIL [ISOPROMETHAZINE HYDROCHLORIDE] [Suspect]
     Active Substance: ISOPROMETHAZINE HYDROCHLORIDE
     Dosage: 25 MILLIGRAM
     Route: 048
  3. TAMSULOSIN [Suspect]
     Active Substance: TAMSULOSIN
     Dosage: UNK
     Route: 048
  4. SPASMO?MUCOSOLVAN [Suspect]
     Active Substance: AMBROXOL\CLENBUTEROL
     Dosage: UNK
     Route: 048

REACTIONS (4)
  - Overdose [Unknown]
  - Suicide attempt [Unknown]
  - Somnolence [Unknown]
  - Drug abuse [Unknown]
